FAERS Safety Report 19654196 (Version 2)
Quarter: 2021Q3

REPORT INFORMATION
  Report Type: Spontaneous
  Country: US (occurrence: US)
  Receive Date: 20210804
  Receipt Date: 20210903
  Transmission Date: 20211014
  Serious: No
  Sender: FDA-Public Use
  Company Number: US-TEVA-2021-US-1937284

PATIENT
  Age: 64 Year
  Sex: Female

DRUGS (3)
  1. IMATINIB MESYLATE. [Suspect]
     Active Substance: IMATINIB MESYLATE
     Route: 065
  2. IMATINIB MESYLATE. [Suspect]
     Active Substance: IMATINIB MESYLATE
     Route: 065
     Dates: start: 2021, end: 202107
  3. IMATINIB MESYLATE. [Suspect]
     Active Substance: IMATINIB MESYLATE
     Route: 065
     Dates: start: 20210715

REACTIONS (1)
  - Photopsia [Not Recovered/Not Resolved]

NARRATIVE: CASE EVENT DATE: 2021
